FAERS Safety Report 6240389-4 (Version None)
Quarter: 2009Q2

REPORT INFORMATION
  Report Type: 
  Country: None (occurrence: None)
  Receive Date: 20090623
  Receipt Date: 20080623
  Transmission Date: 20091009
  Serious: Yes (Other)
  Sender: FDA-Public Use
  Company Number: US-ASTRAZENECA-2008UW12147

PATIENT
  Age: 4 Year
  Sex: Female

DRUGS (3)
  1. PULMICORT RESPULES [Suspect]
     Route: 055
  2. SINGULAIR [Concomitant]
  3. ALBUTEROL [Concomitant]

REACTIONS (1)
  - PSYCHOTIC DISORDER [None]
